FAERS Safety Report 8880321 (Version 1)
Quarter: 2012Q4

REPORT INFORMATION
  Report Type: 
  Country: US (occurrence: US)
  Receive Date: 20121101
  Receipt Date: 20121101
  Transmission Date: 20130627
  Serious: Yes (Disabling)
  Sender: FDA-Public Use
  Company Number: US-PFIZER INC-2012265976

PATIENT
  Age: 54 Year
  Sex: Female

DRUGS (2)
  1. CELEBREX [Suspect]
     Dosage: 200 mg, 2x/day
     Route: 048
  2. NEURONTIN [Suspect]
     Dosage: 300 mg, 3x/day
     Route: 048

REACTIONS (2)
  - Complex regional pain syndrome [Unknown]
  - Neuropathy peripheral [Unknown]
